FAERS Safety Report 7007892-0 (Version None)
Quarter: 2010Q3

REPORT INFORMATION
  Report Type: 
  Country: None (occurrence: None)
  Receive Date: 20100922
  Receipt Date: 20100914
  Transmission Date: 20110219
  Serious: Yes (Other)
  Sender: FDA-Public Use
  Company Number: US-ROCHE-728100

PATIENT
  Sex: Female
  Weight: 56.2 kg

DRUGS (1)
  1. ACCUTANE [Suspect]
     Indication: ACNE
     Dosage: TAKEN DAILY.
     Route: 048
     Dates: start: 20091224, end: 20100301

REACTIONS (2)
  - DEPRESSION [None]
  - SUICIDAL IDEATION [None]
